FAERS Safety Report 4985440-4 (Version None)
Quarter: 2006Q2

REPORT INFORMATION
  Report Type: 
  Country: None (occurrence: None)
  Receive Date: 20060428
  Receipt Date: 20060418
  Transmission Date: 20061013
  Serious: Yes (Other)
  Sender: FDA-Public Use
  Company Number: CA-JNJFOC-20060404033

PATIENT
  Sex: Male

DRUGS (4)
  1. REMICADE [Suspect]
     Route: 042
  2. REMICADE [Suspect]
     Route: 042
  3. REMICADE [Suspect]
     Indication: ANKYLOSING SPONDYLITIS
     Route: 042
  4. PANTOPRAZOLE SODIUM [Concomitant]

REACTIONS (4)
  - CHEST PAIN [None]
  - COUGH [None]
  - EYE PAIN [None]
  - SENSORY DISTURBANCE [None]
